FAERS Safety Report 15263797 (Version 3)
Quarter: 2018Q3

REPORT INFORMATION
  Report Type: Report from Study
  Country: DE (occurrence: DE)
  Receive Date: 20180810
  Receipt Date: 20180911
  Transmission Date: 20181010
  Serious: Yes (Other)
  Sender: FDA-Public Use
  Company Number: DE-ROCHE-2126374

PATIENT
  Age: 37 Year
  Sex: Female

DRUGS (9)
  1. OCREVUS [Suspect]
     Active Substance: OCRELIZUMAB
     Indication: RELAPSING-REMITTING MULTIPLE SCLEROSIS
     Dosage: SECOND INFUSION ON 22?MAY?2018
     Route: 042
     Dates: start: 20180508
  2. PARACODIN [Concomitant]
     Active Substance: DIHYDROCODEINE BITARTRATE
  3. VESIKUR [Concomitant]
     Active Substance: SOLIFENACIN SUCCINATE
     Dosage: 0?1?0
     Route: 065
  4. LYRICA [Concomitant]
     Active Substance: PREGABALIN
     Dosage: 50 MG IN THE MORNING, 75 MG IN THE EVENING
     Route: 065
  5. OXCARBAZEPIN [Concomitant]
     Active Substance: OXCARBAZEPINE
     Dosage: 1?0?1
     Route: 065
  6. CARVEDILOL. [Concomitant]
     Active Substance: CARVEDILOL
     Dosage: 1?0?0
     Route: 065
  7. NORSPAN (GERMANY) [Concomitant]
     Dosage: WEEKLY REPLACEMENT
     Route: 065
  8. BACLOFEN. [Concomitant]
     Active Substance: BACLOFEN
     Dosage: 0?0?1
     Route: 065
  9. L?THYROXINE [Concomitant]
     Active Substance: LEVOTHYROXINE
     Dosage: 1?0?0
     Route: 065

REACTIONS (14)
  - Agitation [Recovered/Resolved]
  - Fluid retention [Not Recovered/Not Resolved]
  - Vocal cord inflammation [Recovered/Resolved]
  - Pulpitis dental [Not Recovered/Not Resolved]
  - Menstruation delayed [Not Recovered/Not Resolved]
  - Trigeminal neuralgia [Recovered/Resolved]
  - Nausea [Recovered/Resolved]
  - Abscess oral [Recovered/Resolved]
  - Multiple sclerosis relapse [Not Recovered/Not Resolved]
  - Hypersensitivity [Recovered/Resolved]
  - Fatigue [Recovered/Resolved]
  - Tooth fracture [Recovered/Resolved]
  - Abdominal pain upper [Recovered/Resolved]
  - Hypotension [Not Recovered/Not Resolved]

NARRATIVE: CASE EVENT DATE: 20180508
